FAERS Safety Report 9511069 (Version 2)
Quarter: 2013Q3

REPORT INFORMATION
  Report Type: Spontaneous
  Country: US (occurrence: None)
  Receive Date: 20130905
  Receipt Date: 20130917
  Transmission Date: 20140515
  Serious: Yes (Hospitalization)
  Sender: FDA-Public Use
  Company Number: SYM-2013-10154

PATIENT
  Age: 40 Year
  Sex: Female

DRUGS (1)
  1. XENAZINE(TETRABENAZINE) (25 MILLIGRAM, TABLET) (TETRABENAZINE) [Suspect]
     Indication: HUNTINGTON^S DISEASE
     Dosage: 50 MG, 2 IN 1 D, ORAL
     Route: 048
     Dates: start: 20130711

REACTIONS (1)
  - Nephrolithiasis [None]
